FAERS Safety Report 7227558-1 (Version None)
Quarter: 2011Q1

REPORT INFORMATION
  Report Type: 
  Country: None (occurrence: None)
  Receive Date: 20110114
  Receipt Date: 20110103
  Transmission Date: 20110831
  Serious: Yes (Hospitalization)
  Sender: FDA-Public Use
  Company Number: US-ENDO PHARMACEUTICALS INC.-VALS20110001

PATIENT
  Sex: Female

DRUGS (2)
  1. VALSTAR PRESERVATIVE FREE [Suspect]
     Route: 043
     Dates: start: 20101129, end: 20101129
  2. VALSTAR PRESERVATIVE FREE [Suspect]
     Route: 043
     Dates: start: 20101122, end: 20101122

REACTIONS (1)
  - FALL [None]
